FAERS Safety Report 7391028-0 (Version None)
Quarter: 2011Q2

REPORT INFORMATION
  Report Type: 
  Country: None (occurrence: None)
  Receive Date: 20110404
  Receipt Date: 20110321
  Transmission Date: 20111010
  Serious: Yes (Other)
  Sender: FDA-Public Use
  Company Number: SE-JNJFOC-20110309027

PATIENT
  Age: 53 Year
  Sex: Female

DRUGS (6)
  1. IMUREL [Concomitant]
  2. DIKLOFENAK [Concomitant]
  3. REMICADE [Suspect]
     Indication: CROHN'S DISEASE
     Route: 042
  4. IMUREL [Concomitant]
     Indication: CROHN'S DISEASE
  5. IMUREL [Concomitant]
  6. PAPAVERIN [Concomitant]

REACTIONS (1)
  - SYSTEMIC LUPUS ERYTHEMATOSUS [None]
